FAERS Safety Report 22537955 (Version 1)
Quarter: 2023Q2

REPORT INFORMATION
  Report Type: Spontaneous
  Country: CN (occurrence: None)
  Receive Date: 20230608
  Receipt Date: 20230608
  Transmission Date: 20230721
  Serious: Yes (Hospitalization)
  Sender: FDA-Public Use
  Company Number: 2023A127609

PATIENT
  Age: 23019 Day
  Sex: Female
  Weight: 59 kg

DRUGS (3)
  1. OSIMERTINIB MESYLATE [Suspect]
     Active Substance: OSIMERTINIB MESYLATE
     Indication: Neoplasm
     Route: 048
     Dates: start: 20230518, end: 20230528
  2. OSIMERTINIB MESYLATE [Suspect]
     Active Substance: OSIMERTINIB MESYLATE
     Indication: Adenocarcinoma
     Route: 048
     Dates: start: 20230518, end: 20230528
  3. GLUTATHIONE [Concomitant]
     Active Substance: GLUTATHIONE

REACTIONS (2)
  - Hepatic function abnormal [Unknown]
  - Drug-induced liver injury [Unknown]

NARRATIVE: CASE EVENT DATE: 20230528
